FAERS Safety Report 5722569 (Version 3)
Quarter: 2017Q1

REPORT INFORMATION
  Report Type: Spontaneous
  Country: JP (occurrence: JP)
  Receive Date: 20050126
  Receipt Date: 20170207
  Transmission Date: 20170429
  Serious: Yes (Death, Other)
  Sender: FDA-Public Use
  Company Number: JP-BRISTOL-MYERS SQUIBB COMPANY-12831863

PATIENT
  Age: 64 Year
  Sex: Female

DRUGS (3)
  1. RANDA [Concomitant]
     Active Substance: CISPLATIN
     Indication: GASTRIC CANCER
     Dosage: 50 MG, QD
     Route: 041
     Dates: start: 20041227, end: 20041227
  2. BRIPLATIN [Suspect]
     Active Substance: CISPLATIN
     Indication: GASTRIC CANCER
     Dosage: 25 MG, QD
     Route: 041
     Dates: start: 20041227, end: 20041227
  3. TS-1 [Concomitant]
     Active Substance: GIMERACIL\OTERACIL\TEGAFUR
     Indication: GASTRIC CANCER
     Dosage: 100 MG, QD
     Route: 048
     Dates: start: 20041216, end: 20050105

REACTIONS (1)
  - Pulmonary embolism [Fatal]

NARRATIVE: CASE EVENT DATE: 20050116
